FAERS Safety Report 4284368-5 (Version None)
Quarter: 2004Q1

REPORT INFORMATION
  Report Type: 
  Country: None (occurrence: None)
  Receive Date: 20040130
  Receipt Date: 20040119
  Transmission Date: 20041129
  Serious: Yes (Hospitalization)
  Sender: FDA-Public Use
  Company Number: US-JNJFOC-20040103838

PATIENT
  Age: 63 Year
  Sex: Female
  Weight: 52.6173 kg

DRUGS (5)
  1. INFLIXIMAB (INFLIXIMAB, RECOMBINANT) LYOPHILIZED POWDER [Suspect]
     Indication: CROHN'S DISEASE
     Dosage: INTRAVENOUS
     Route: 042
  2. ANTIBIOTICS (ANTIBIOTICS) [Concomitant]
  3. PREDNISONE [Concomitant]
  4. AZATHIOPRINE [Concomitant]
  5. CELLCEPT [Concomitant]

REACTIONS (7)
  - ABDOMINAL ABSCESS [None]
  - CATHETER RELATED INFECTION [None]
  - COUGH [None]
  - DIZZINESS [None]
  - ENTEROCOCCAL SEPSIS [None]
  - ENTEROCUTANEOUS FISTULA [None]
  - RHINITIS [None]
